FAERS Safety Report 22284439 (Version 3)
Quarter: 2025Q3

REPORT INFORMATION
  Report Type: Spontaneous
  Country: GB (occurrence: GB)
  Receive Date: 20230504
  Receipt Date: 20250825
  Transmission Date: 20251020
  Serious: Yes (Other)
  Sender: PFIZER
  Company Number: GB-002147023-NVSC2023GB090396

PATIENT
  Age: 49 Year
  Sex: Male

DRUGS (5)
  1. METHOTREXATE SODIUM [Suspect]
     Active Substance: METHOTREXATE SODIUM
     Dosage: 15 MG, WEEKLY
     Route: 048
     Dates: start: 2016
  2. METHOTREXATE SODIUM [Suspect]
     Active Substance: METHOTREXATE SODIUM
     Route: 048
     Dates: end: 202011
  3. COSENTYX [Suspect]
     Active Substance: SECUKINUMAB
     Dosage: 1 DF, WEEKLY (QW (5 WEEKLY DOSES AND THEN EVERY CALENDER MONTH)
     Route: 058
     Dates: start: 202011
  4. COSENTYX [Suspect]
     Active Substance: SECUKINUMAB
     Route: 065
     Dates: start: 202103
  5. LAMIVUDINE [Concomitant]
     Active Substance: LAMIVUDINE
     Indication: Antiviral prophylaxis
     Dosage: 100 MG, DAILY
     Route: 065
     Dates: start: 202011

REACTIONS (6)
  - Tuberculosis [Unknown]
  - Therapeutic product effect incomplete [Unknown]
  - Anxiety [Unknown]
  - Post inflammatory pigmentation change [Unknown]
  - Weight decreased [Unknown]
  - Biopsy skin abnormal [Unknown]

NARRATIVE: CASE EVENT DATE: 20160401
